FAERS Safety Report 6704430-4 (Version None)
Quarter: 2010Q2

REPORT INFORMATION
  Report Type: 
  Country: None (occurrence: None)
  Receive Date: 20100423
  Receipt Date: 20100206
  Transmission Date: 20101027
  Serious: No
  Sender: FDA-Public Use
  Company Number: ALL1-2010-00688

PATIENT
  Age: 26 Year
  Sex: Male
  Weight: 81.6 kg

DRUGS (4)
  1. VYVANSE [Suspect]
     Indication: ATTENTION DEFICIT/HYPERACTIVITY DISORDER
     Dosage: 70 MG, 1X/DAY:QD, ORAL
     Route: 048
     Dates: start: 20090201
  2. KLONOPIN [Concomitant]
  3. PROZAC [Concomitant]
  4. . [Concomitant]

REACTIONS (3)
  - DRUG DIVERSION [None]
  - NO ADVERSE EVENT [None]
  - THEFT [None]
